FAERS Safety Report 17005290 (Version 1)
Quarter: 2019Q4

REPORT INFORMATION
  Report Type: Spontaneous
  Country: GB (occurrence: GB)
  Receive Date: 20191107
  Receipt Date: 20191107
  Transmission Date: 20200122
  Serious: Yes (Hospitalization)
  Sender: FDA-Public Use
  Company Number: GB-ASTRAZENECA-2019SF54820

PATIENT
  Age: 71 Year
  Sex: Female

DRUGS (10)
  1. ESOMEPRAZOLE SODIUM. [Suspect]
     Active Substance: ESOMEPRAZOLE SODIUM
     Dosage: 80.0MG UNKNOWN
     Route: 048
  2. SLOW SODIUM [Concomitant]
  3. RANITIDINE. [Concomitant]
     Active Substance: RANITIDINE
  4. CODEINE PHOSPHATE [Concomitant]
     Active Substance: CODEINE PHOSPHATE
  5. ALENDRONIC ACID [Concomitant]
     Active Substance: ALENDRONIC ACID
  6. LOSARTAN POTASSIUM. [Concomitant]
     Active Substance: LOSARTAN POTASSIUM
  7. GABAPENTIN. [Concomitant]
     Active Substance: GABAPENTIN
  8. PROCHLORPERAZINE. [Concomitant]
     Active Substance: PROCHLORPERAZINE
  9. DOCUSATE [Concomitant]
     Active Substance: DOCUSATE
  10. DEMECLOCYCLINE [Concomitant]
     Active Substance: DEMECLOCYCLINE

REACTIONS (2)
  - Hyponatraemia [Not Recovered/Not Resolved]
  - Product prescribing error [Unknown]
